FAERS Safety Report 4927354-1 (Version None)
Quarter: 2006Q1

REPORT INFORMATION
  Report Type: 
  Country: None (occurrence: None)
  Receive Date: 20060228
  Receipt Date: 20050916
  Transmission Date: 20060701
  Serious: No
  Sender: FDA-Public Use
  Company Number: US-GLAXOSMITHKLINE-A0574515A

PATIENT
  Age: 41 Year
  Sex: Female

DRUGS (5)
  1. IMITREX [Suspect]
     Indication: MIGRAINE
     Route: 058
     Dates: start: 20050101
  2. DEPAKOTE [Concomitant]
  3. ASPIRIN [Concomitant]
  4. RELPAX [Concomitant]
     Dosage: 40MG PER DAY
  5. LUVOX [Concomitant]
     Dosage: 100MG PER DAY

REACTIONS (1)
  - ALOPECIA [None]
